FAERS Safety Report 5097641-8 (Version None)
Quarter: 2006Q3

REPORT INFORMATION
  Report Type: 
  Country: None (occurrence: None)
  Receive Date: 20060901
  Receipt Date: 20060822
  Transmission Date: 20061208
  Serious: Yes (Hospitalization)
  Sender: FDA-Public Use
  Company Number: FACT0600310

PATIENT
  Age: 45 Year
  Sex: Male
  Weight: 83.9 kg

DRUGS (2)
  1. FACTIVE [Suspect]
     Indication: RESPIRATORY TRACT INFECTION BACTERIAL
     Dosage: 320 MG, QD, ORAL
     Route: 048
     Dates: start: 20060602, end: 20060606
  2. PREDNISOLONE [Suspect]
     Indication: UPPER RESPIRATORY TRACT INFECTION
     Dates: start: 20060602, end: 20060606

REACTIONS (22)
  - ACUTE PSYCHOSIS [None]
  - AGGRESSION [None]
  - AGITATION [None]
  - BLOOD GLUCOSE INCREASED [None]
  - CONFUSIONAL STATE [None]
  - CSF GLUCOSE INCREASED [None]
  - DELIRIUM [None]
  - DELUSION [None]
  - ENCEPHALITIS HERPES [None]
  - FATIGUE [None]
  - MANIA [None]
  - NONSPECIFIC REACTION [None]
  - OXYGEN SATURATION DECREASED [None]
  - PARANOIA [None]
  - PHYSICAL ASSAULT [None]
  - POOR QUALITY SLEEP [None]
  - RESPIRATORY RATE INCREASED [None]
  - RHABDOMYOLYSIS [None]
  - ROTATOR CUFF SYNDROME [None]
  - SINUS TACHYCARDIA [None]
  - SPEECH DISORDER [None]
  - VIRAL INFECTION [None]
